FAERS Safety Report 4630330-X (Version None)
Quarter: 2005Q2

REPORT INFORMATION
  Report Type: 
  Country: None (occurrence: None)
  Receive Date: 20050405
  Receipt Date: 20050405
  Transmission Date: 20051028
  Serious: Yes (Life-Threatening, Hospitalization)
  Sender: FDA-Public Use
  Company Number: None

PATIENT
  Age: 72 Year
  Sex: Male
  Weight: 90.8555 kg

DRUGS (21)
  1. GEMZAR [Suspect]
     Indication: PANCREATIC CARCINOMA
     Dosage: 2000MG IV WEEKLY X 7 WKS THEN,DAY1,8,15 Q 4 WKS
     Route: 042
     Dates: start: 20040522
  2. GEMZAR [Suspect]
     Indication: PANCREATIC CARCINOMA
     Dosage: 2000MG IV WEEKLY X 7 WKS THEN,DAY1,8,15 Q 4 WKS
     Route: 042
     Dates: start: 20040603
  3. GEMZAR [Suspect]
     Indication: PANCREATIC CARCINOMA
     Dosage: 2000MG IV WEEKLY X 7 WKS THEN,DAY1,8,15 Q 4 WKS
     Route: 042
     Dates: start: 20040610
  4. GEMZAR [Suspect]
     Indication: PANCREATIC CARCINOMA
     Dosage: 2000MG IV WEEKLY X 7 WKS THEN,DAY1,8,15 Q 4 WKS
     Route: 042
     Dates: start: 20040617
  5. GEMZAR [Suspect]
     Indication: PANCREATIC CARCINOMA
     Dosage: 2000MG IV WEEKLY X 7 WKS THEN,DAY1,8,15 Q 4 WKS
     Route: 042
     Dates: start: 20040624
  6. GEMZAR [Suspect]
     Indication: PANCREATIC CARCINOMA
     Dosage: 2000MG IV WEEKLY X 7 WKS THEN,DAY1,8,15 Q 4 WKS
     Route: 042
     Dates: start: 20040701
  7. GEMZAR [Suspect]
     Indication: PANCREATIC CARCINOMA
     Dosage: 2000MG IV WEEKLY X 7 WKS THEN,DAY1,8,15 Q 4 WKS
     Route: 042
     Dates: start: 20040708
  8. GEMZAR [Suspect]
     Indication: PANCREATIC CARCINOMA
     Dosage: 2000MG IV WEEKLY X 7 WKS THEN,DAY1,8,15 Q 4 WKS
     Route: 042
     Dates: start: 20040722
  9. GEMZAR [Suspect]
     Indication: PANCREATIC CARCINOMA
     Dosage: 2000MG IV WEEKLY X 7 WKS THEN,DAY1,8,15 Q 4 WKS
     Route: 042
     Dates: start: 20040729
  10. GEMZAR [Suspect]
     Indication: PANCREATIC CARCINOMA
     Dosage: 2000MG IV WEEKLY X 7 WKS THEN,DAY1,8,15 Q 4 WKS
     Route: 042
     Dates: start: 20040805
  11. GEMZAR [Suspect]
     Indication: PANCREATIC CARCINOMA
     Dosage: 2000MG IV WEEKLY X 7 WKS THEN,DAY1,8,15 Q 4 WKS
     Route: 042
     Dates: start: 20040819
  12. GEMZAR [Suspect]
     Indication: PANCREATIC CARCINOMA
     Dosage: 2000MG IV WEEKLY X 7 WKS THEN,DAY1,8,15 Q 4 WKS
     Route: 042
     Dates: start: 20040826
  13. GEMZAR [Suspect]
     Indication: PANCREATIC CARCINOMA
     Dosage: 2000MG IV WEEKLY X 7 WKS THEN,DAY1,8,15 Q 4 WKS
     Route: 042
     Dates: start: 20040902
  14. GEMZAR [Suspect]
     Indication: PANCREATIC CARCINOMA
     Dosage: 2000MG IV WEEKLY X 7 WKS THEN,DAY1,8,15 Q 4 WKS
     Route: 042
     Dates: start: 20040916
  15. GEMZAR [Suspect]
     Indication: PANCREATIC CARCINOMA
     Dosage: 2000MG IV WEEKLY X 7 WKS THEN,DAY1,8,15 Q 4 WKS
     Route: 042
     Dates: start: 20040923
  16. GEMZAR [Suspect]
     Indication: PANCREATIC CARCINOMA
     Dosage: 2000MG IV WEEKLY X 7 WKS THEN,DAY1,8,15 Q 4 WKS
     Route: 042
     Dates: start: 20040930
  17. GEMZAR [Suspect]
     Indication: PANCREATIC CARCINOMA
     Dosage: 2000MG IV WEEKLY X 7 WKS THEN,DAY1,8,15 Q 4 WKS
     Route: 042
     Dates: start: 20041014
  18. GEMZAR [Suspect]
     Indication: PANCREATIC CARCINOMA
     Dosage: 2000MG IV WEEKLY X 7 WKS THEN,DAY1,8,15 Q 4 WKS
     Route: 042
     Dates: start: 20041021
  19. GEMZAR [Suspect]
     Indication: PANCREATIC CARCINOMA
     Dosage: 2000MG IV WEEKLY X 7 WKS THEN,DAY1,8,15 Q 4 WKS
     Route: 042
     Dates: start: 20041028
  20. GEMZAR [Suspect]
     Indication: PANCREATIC CARCINOMA
     Dosage: 2000MG IV WEEKLY X 7 WKS THEN,DAY1,8,15 Q 4 WKS
     Route: 042
     Dates: start: 20041111
  21. GEMZAR [Suspect]
     Indication: PANCREATIC CARCINOMA
     Dosage: 2000MG IV WEEKLY X 7 WKS THEN,DAY1,8,15 Q 4 WKS
     Route: 042
     Dates: start: 20041122

REACTIONS (1)
  - GENERALISED OEDEMA [None]
